FAERS Safety Report 5169458-7 (Version None)
Quarter: 2006Q4

REPORT INFORMATION
  Report Type: 
  Country: None (occurrence: None)
  Receive Date: 20061201
  Receipt Date: 20061120
  Transmission Date: 20070319
  Serious: Yes (Hospitalization, Disabling, Other)
  Sender: FDA-Public Use
  Company Number: 2006089822

PATIENT
  Sex: Female

DRUGS (4)
  1. CELEBREX [Suspect]
     Indication: ARTHRITIS
  2. AMBIEN [Suspect]
  3. DI-GEL (ALUMINIUM HYDROXIDE-MAGNESIUM CARBONATE GEL, MAGNESIUM HYDROXI [Concomitant]
  4. ALL OTHER THERAPEUTIC PRODUCTS (ALL OTHER THERAPEUTIC PRODUCTS) [Concomitant]

REACTIONS (17)
  - ANAEMIA [None]
  - BALANCE DISORDER [None]
  - CHOLECYSTECTOMY [None]
  - CONSTIPATION [None]
  - DIZZINESS [None]
  - DYSPEPSIA [None]
  - GASTRIC CANCER [None]
  - GASTRIC HAEMORRHAGE [None]
  - HAEMATEMESIS [None]
  - HAEMORRHAGE [None]
  - ILL-DEFINED DISORDER [None]
  - INCORRECT DOSE ADMINISTERED [None]
  - PAIN [None]
  - RECURRENT CANCER [None]
  - SPLENECTOMY [None]
  - SURGERY [None]
  - WALKING AID USER [None]
